FAERS Safety Report 7061240-9 (Version None)
Quarter: 2010Q4

REPORT INFORMATION
  Report Type: 
  Country: None (occurrence: None)
  Receive Date: 20101026
  Receipt Date: 20101020
  Transmission Date: 20110411
  Serious: Yes (Other)
  Sender: FDA-Public Use
  Company Number: US-PFIZER INC-2010115587

PATIENT
  Sex: Female
  Weight: 67.585 kg

DRUGS (9)
  1. ARTHROTEC [Suspect]
     Indication: GASTROINTESTINAL PAIN
     Dosage: UNK
     Route: 048
     Dates: end: 20100909
  2. ARTHROTEC [Suspect]
     Indication: DYSMENORRHOEA
  3. ARTHROTEC [Suspect]
     Indication: TOOTHACHE
  4. MONTELUKAST SODIUM [Concomitant]
     Indication: ASTHMA
     Dosage: UNK
  5. ALPRAZOLAM [Concomitant]
     Indication: ANXIETY
     Dosage: 0.25 MG, 2X/DAY, AS NEEDED
  6. SERTRALINE [Concomitant]
     Dosage: 50 MG, 1X/DAY
  7. EFFEXOR XR [Concomitant]
     Dosage: 150 MG, DAILY
  8. FLONASE [Concomitant]
     Dosage: UNK
  9. NASONEX [Concomitant]
     Dosage: UNK

REACTIONS (10)
  - ABDOMINAL DISCOMFORT [None]
  - CHILLS [None]
  - CONVULSION [None]
  - DIARRHOEA [None]
  - FLUSHING [None]
  - HYPERHIDROSIS [None]
  - HYPERVENTILATION [None]
  - PAIN [None]
  - PALLOR [None]
  - PARAESTHESIA [None]
